FAERS Safety Report 7516871-6 (Version None)
Quarter: 2011Q2

REPORT INFORMATION
  Report Type: 
  Country: None (occurrence: None)
  Receive Date: 20110601
  Receipt Date: 20110516
  Transmission Date: 20111010
  Serious: No
  Sender: FDA-Public Use
  Company Number: US-B.I. PHARMACEUTICALS,INC./RIDGEFIELD-2011-BP-13456BP

PATIENT
  Age: 43 Year
  Sex: Female
  Weight: 72.57 kg

DRUGS (1)
  1. MELOXICAM [Suspect]
     Dates: start: 20110516

REACTIONS (12)
  - ACCIDENTAL EXPOSURE [None]
  - STOMATITIS [None]
  - EYE IRRITATION [None]
  - TREMOR [None]
  - PAIN OF SKIN [None]
  - IRRITABILITY [None]
  - EYE PAIN [None]
  - AGITATION [None]
  - DYSGEUSIA [None]
  - SKIN IRRITATION [None]
  - HEADACHE [None]
  - NASAL DISCOMFORT [None]
